FAERS Safety Report 4586859-6 (Version None)
Quarter: 2005Q1

REPORT INFORMATION
  Report Type: 
  Country: None (occurrence: None)
  Receive Date: 20050215
  Receipt Date: 20050201
  Transmission Date: 20050727
  Serious: Yes (Hospitalization)
  Sender: FDA-Public Use
  Company Number: 2004BI001257

PATIENT
  Age: 41 Year
  Sex: Female

DRUGS (10)
  1. AVONEX [Suspect]
     Indication: MULTIPLE SCLEROSIS
     Dosage: 30 UG;QW;IM
     Route: 030
     Dates: start: 20030123, end: 20030801
  2. AVONEX [Suspect]
     Indication: MULTIPLE SCLEROSIS
     Dosage: 30 UG;QW;IM
     Route: 030
     Dates: start: 20030808
  3. PREVACID [Concomitant]
  4. CELEXA [Concomitant]
  5. ZOCOR [Concomitant]
  6. ELAVIL [Concomitant]
  7. AMANTADINE [Concomitant]
  8. SYNTHROID [Concomitant]
  9. HUMALOG [Concomitant]
  10. INSULIN PUMP [Concomitant]

REACTIONS (3)
  - CONDITION AGGRAVATED [None]
  - MULTIPLE SCLEROSIS [None]
  - OPTIC NEURITIS [None]
